FAERS Safety Report 5696305-7 (Version None)
Quarter: 2008Q2

REPORT INFORMATION
  Report Type: 
  Country: None (occurrence: None)
  Receive Date: 20080407
  Receipt Date: 20080331
  Transmission Date: 20081010
  Serious: Yes (Hospitalization, Other)
  Sender: FDA-Public Use
  Company Number: IT-PFIZER INC-2007065349

PATIENT
  Age: 62 Year
  Sex: Male

DRUGS (1)
  1. SERTRALINE HYDROCHLORIDE [Suspect]
     Indication: ASTROCYTOMA

REACTIONS (2)
  - TOXIC EPIDERMAL NECROLYSIS [None]
  - WOUND INFECTION STAPHYLOCOCCAL [None]
